FAERS Safety Report 11109553 (Version 1)
Quarter: 2015Q2

REPORT INFORMATION
  Report Type: Spontaneous
  Country: US (occurrence: US)
  Receive Date: 20150513
  Receipt Date: 20150513
  Transmission Date: 20150821
  Serious: No
  Sender: FDA-Public Use
  Company Number: US-MYLANLABS-2015M1012357

PATIENT
  Age: 16 Year
  Sex: Female

DRUGS (1)
  1. XULANE [Suspect]
     Active Substance: ETHINYL ESTRADIOL\NORELGESTROMIN
     Indication: CONTRACEPTION
     Dosage: 150 UG/35 UG/DAY 1 PATCH WKLY FOR 3 WKS OFF ONE WK
     Route: 062
     Dates: start: 20150401, end: 20150405

REACTIONS (1)
  - Oligomenorrhoea [Recovering/Resolving]

NARRATIVE: CASE EVENT DATE: 20150401
